FAERS Safety Report 10657325 (Version 1)
Quarter: 2014Q4

REPORT INFORMATION
  Report Type: Spontaneous
  Country: US (occurrence: None)
  Receive Date: 20141215
  Receipt Date: 20141215
  Transmission Date: 20150529
  Serious: Yes (Hospitalization, Disabling)
  Sender: FDA-Public Use
  Company Number: US-ALSI-201400264

PATIENT
  Age: 29 Year
  Sex: Male

DRUGS (1)
  1. NITROUS OXIDE. [Suspect]
     Active Substance: NITROUS OXIDE
     Indication: DRUG ABUSE
     Dosage: 70% TOTAL RESPIRATORY
     Route: 055

REACTIONS (5)
  - Blood folate decreased [None]
  - Drug abuse [None]
  - Wheelchair user [None]
  - Subacute combined cord degeneration [None]
  - Vitamin B12 decreased [None]
